FAERS Safety Report 14523984 (Version 1)
Quarter: 2018Q1

REPORT INFORMATION
  Report Type: Spontaneous
  Country: CN (occurrence: CN)
  Receive Date: 20180213
  Receipt Date: 20180213
  Transmission Date: 20180509
  Serious: Yes (Other)
  Sender: FDA-Public Use
  Company Number: CN-ROCHE-2065809

PATIENT
  Age: 49 Year
  Sex: Female
  Weight: 42 kg

DRUGS (4)
  1. OXALIPLATIN. [Suspect]
     Active Substance: OXALIPLATIN
     Indication: ADENOCARCINOMA OF COLON
     Route: 041
     Dates: start: 20171109, end: 20171109
  2. RECOMBINANT HUMAN INTERLEUKIN-11 [Concomitant]
  3. XELODA [Suspect]
     Active Substance: CAPECITABINE
     Indication: ADENOCARCINOMA OF COLON
     Dosage: 2 TABLETS AFTER BREAKFAST, 3 TABLETS AFTER DINNER
     Route: 048
     Dates: start: 20171109, end: 20171109
  4. SHENG XUE XIAO BAN JIAO NANG [Concomitant]

REACTIONS (2)
  - Bone marrow failure [Recovering/Resolving]
  - Hepatic function abnormal [Recovering/Resolving]

NARRATIVE: CASE EVENT DATE: 20171112
